FAERS Safety Report 10484913 (Version 1)
Quarter: 2014Q3

REPORT INFORMATION
  Report Type: Spontaneous
  Country: IT (occurrence: IT)
  Receive Date: 20140930
  Receipt Date: 20140930
  Transmission Date: 20150326
  Serious: Yes (Other)
  Sender: FDA-Public Use
  Company Number: IT-BAYER-2014-142648

PATIENT
  Age: 70 Year
  Sex: Male
  Weight: 68 kg

DRUGS (10)
  1. CARDIOASPIRIN [Suspect]
     Active Substance: ASPIRIN
     Indication: THROMBOSIS PROPHYLAXIS
     Dosage: UNK
     Dates: start: 2014
  2. KERITRINA [Concomitant]
     Indication: CARDIAC DISORDER
     Dosage: DAILY DOSE 5 MG
     Route: 062
     Dates: start: 20140226, end: 20140918
  3. CLOPIDOGREL [Suspect]
     Active Substance: CLOPIDOGREL BISULFATE
     Indication: THROMBOSIS PROPHYLAXIS
     Dosage: DAILY DOSE OF 75 MG
     Route: 048
     Dates: start: 20140226, end: 20140617
  4. CARDIOASPIRIN [Suspect]
     Active Substance: ASPIRIN
     Indication: THROMBOSIS PROPHYLAXIS
     Dosage: DAILY DOSE OF 100 MG
     Route: 048
     Dates: start: 20140226, end: 20140617
  5. PROVISACOR [Concomitant]
     Active Substance: ROSUVASTATIN
     Indication: HYPERCHOLESTEROLAEMIA
     Dosage: DAILY DOSE OF 10 MG
     Route: 048
     Dates: start: 20140226, end: 20140918
  6. LASIX [Concomitant]
     Active Substance: FUROSEMIDE
     Indication: HYPERTENSION
     Dosage: DAILY DOSE 25 MG
     Route: 048
     Dates: start: 20140226, end: 20140918
  7. ZANTIPRES [Concomitant]
     Indication: HYPERTENSION
     Dosage: DAILY DOSE 30 MG
     Route: 048
     Dates: start: 20140226, end: 20140918
  8. RANIBEN [Concomitant]
     Indication: GASTRITIS EROSIVE
     Dosage: DAILY DOSE 300 MG
     Route: 048
     Dates: start: 20140226, end: 20140918
  9. NORVASC [Concomitant]
     Active Substance: AMLODIPINE BESYLATE
     Indication: HYPERTENSION
     Dosage: DAILY DOSE 5 MG
     Route: 048
     Dates: start: 20140226, end: 20140918
  10. SELOKEN [Concomitant]
     Active Substance: METOPROLOL
     Indication: HYPERTENSION
     Dosage: DAILY DOSE 50 MG
     Route: 048
     Dates: start: 20140226, end: 20140918

REACTIONS (6)
  - Asthenia [Recovering/Resolving]
  - Burning sensation [Not Recovered/Not Resolved]
  - Vertigo [Recovering/Resolving]
  - Petechiae [Not Recovered/Not Resolved]
  - Pruritus [Not Recovered/Not Resolved]
  - Drug hypersensitivity [Not Recovered/Not Resolved]

NARRATIVE: CASE EVENT DATE: 20140617
